FAERS Safety Report 8164174-1 (Version None)
Quarter: 2012Q1

REPORT INFORMATION
  Report Type: 
  Country: None (occurrence: None)
  Receive Date: 20120221
  Receipt Date: 20120210
  Transmission Date: 20120608
  Serious: Yes (Congenital Anomaly, Other)
  Sender: FDA-Public Use
  Company Number: AUR-APL-2012-00962

PATIENT
  Sex: Female
  Weight: 1.71 kg

DRUGS (4)
  1. FRISIUM (CLOBAZAM) [Suspect]
     Indication: EPILEPSY
     Dosage: 7.5 MG (2.5 MG, 2 IN 1 D), TRANSPLACENTAL
     Route: 064
     Dates: start: 20101217, end: 20110211
  2. LAMOTRIGINE [Suspect]
     Indication: EPILEPSY
     Dosage: (150 MG, 1 D) TRANSPLACENTAL, (375 MG, 1 D), TRANSPLACENTAL
     Route: 064
     Dates: start: 20100708, end: 20110211
  3. FOLSAURE RATIOPHARM (FOLIC ACID) [Concomitant]
  4. LEVOTHYROXINE SODIUM [Concomitant]

REACTIONS (18)
  - ANAEMIA NEONATAL [None]
  - CONGENITAL CHOROID PLEXUS CYST [None]
  - NEONATAL RESPIRATORY DISTRESS SYNDROME [None]
  - HYPOGLYCAEMIA NEONATAL [None]
  - FEEDING DISORDER OF INFANCY OR EARLY CHILDHOOD [None]
  - MATERNAL DRUGS AFFECTING FOETUS [None]
  - FOETAL HEART RATE DECELERATION [None]
  - POOR SUCKING REFLEX [None]
  - MYOCLONUS [None]
  - ATRIAL SEPTAL DEFECT [None]
  - VENTRICULAR SEPTAL DEFECT [None]
  - CAESAREAN SECTION [None]
  - FLUID INTAKE REDUCED [None]
  - CEREBRAL HAEMORRHAGE NEONATAL [None]
  - HYPERBILIRUBINAEMIA NEONATAL [None]
  - CARDIAC ANEURYSM [None]
  - PREMATURE BABY [None]
  - CONVULSION NEONATAL [None]
